FAERS Safety Report 15617653 (Version 1)
Quarter: 2018Q4

REPORT INFORMATION
  Report Type: Spontaneous
  Country: FR (occurrence: FR)
  Receive Date: 20181114
  Receipt Date: 20181114
  Transmission Date: 20190205
  Serious: Yes (Other)
  Sender: FDA-Public Use
  Company Number: FR-BAYER-2018-206440

PATIENT
  Age: 79 Year
  Sex: Female

DRUGS (3)
  1. STIVARGA [Suspect]
     Active Substance: REGORAFENIB
     Indication: NEOPLASM MALIGNANT
     Dosage: 80 MG, QD
     Dates: start: 201804
  2. STIVARGA [Suspect]
     Active Substance: REGORAFENIB
     Indication: METASTASES TO LIVER
     Dosage: 120 MG DAILY
  3. STIVARGA [Suspect]
     Active Substance: REGORAFENIB
     Indication: METASTASES TO PERITONEUM

REACTIONS (6)
  - Decreased appetite [Recovering/Resolving]
  - Metastases to peritoneum [None]
  - Asthenia [Recovering/Resolving]
  - Off label use [None]
  - Weight decreased [Recovering/Resolving]
  - Palmar-plantar erythrodysaesthesia syndrome [None]

NARRATIVE: CASE EVENT DATE: 201809
